FAERS Safety Report 4594614-6 (Version None)
Quarter: 2005Q1

REPORT INFORMATION
  Report Type: 
  Country: None (occurrence: None)
  Receive Date: 20050301
  Receipt Date: 20041103
  Transmission Date: 20050727
  Serious: Yes (Hospitalization)
  Sender: FDA-Public Use
  Company Number: US-BRISTOL-MYERS SQUIBB COMPANY-12754735

PATIENT
  Sex: Male

DRUGS (3)
  1. ERBITUX [Suspect]
     Indication: COLORECTAL CANCER
     Dosage: 1ST DOSE, TEST DOSE
     Route: 042
     Dates: start: 20041028, end: 20041028
  2. BENADRYL [Concomitant]
     Indication: PREMEDICATION
     Route: 042
     Dates: start: 20041028, end: 20041028
  3. OXYCODONE HCL [Concomitant]

REACTIONS (1)
  - ANAPHYLACTIC REACTION [None]
